FAERS Safety Report 8102757-5 (Version None)
Quarter: 2012Q1

REPORT INFORMATION
  Report Type: 
  Country: None (occurrence: None)
  Receive Date: 20120126
  Receipt Date: 20120113
  Transmission Date: 20120608
  Serious: Yes (Hospitalization)
  Sender: FDA-Public Use
  Company Number: 2012SP002602

PATIENT
  Age: 62 Year
  Sex: Male

DRUGS (8)
  1. PEG-INTRON [Suspect]
     Indication: CHRONIC HEPATITIS
     Dosage: 100 MCG; QW; IM
     Route: 030
     Dates: start: 20111116, end: 20120104
  2. RIBAVIRIN [Suspect]
     Indication: CHRONIC HEPATITIS
     Dosage: 1000 MG; QD; PO
     Route: 048
     Dates: start: 20111116, end: 20120104
  3. RIFAXIMIN [Concomitant]
  4. ESKIM [Concomitant]
  5. LASIX [Concomitant]
  6. LUVION /00252501/ [Concomitant]
  7. LANSOPRAZOLE [Concomitant]
  8. BOCEPREVIR (SCH-503034) [Suspect]
     Indication: CHRONIC HEPATITIS
     Dosage: 2400 MG; QD; PO
     Route: 048
     Dates: start: 20111214, end: 20120104

REACTIONS (1)
  - EFFUSION [None]
